APPROVED DRUG PRODUCT: EPHEDRINE SULFATE
Active Ingredient: EPHEDRINE SULFATE
Strength: 25MG/5ML (5MG/ML)
Dosage Form/Route: SOLUTION;INTRAVENOUS
Application: A217721 | Product #001 | TE Code: AP3
Applicant: HIKMA PHARMACEUTICALS USA INC
Approved: Oct 11, 2024 | RLD: No | RS: No | Type: RX